FAERS Safety Report 9929081 (Version 11)
Quarter: 2018Q4

REPORT INFORMATION
  Report Type: Report from Study
  Country: BR (occurrence: BR)
  Receive Date: 20140227
  Receipt Date: 20181106
  Transmission Date: 20190205
  Serious: Yes (Other)
  Sender: FDA-Public Use
  Company Number: PHHY2014BR021611

PATIENT
  Sex: Female
  Weight: 71 kg

DRUGS (3)
  1. PURAN [Concomitant]
     Active Substance: LEVOTHYROXINE SODIUM
     Indication: HYPOTHYROIDISM
     Dosage: 150 MG, QD
     Route: 048
     Dates: start: 2007
  2. SANDOSTATIN LAR DEPOT [Suspect]
     Active Substance: OCTREOTIDE ACETATE
     Indication: PITUITARY TUMOUR
     Dosage: 20 MG, Q2MO
     Route: 030
     Dates: start: 2007
  3. SANDOSTATIN LAR DEPOT [Suspect]
     Active Substance: OCTREOTIDE ACETATE
     Indication: ACROMEGALY
     Dosage: 20 MG, EVERY 28 DAYS
     Route: 030
     Dates: start: 2007

REACTIONS (32)
  - Thyroid cancer [Not Recovered/Not Resolved]
  - Headache [Recovered/Resolved]
  - Calculus bladder [Recovered/Resolved]
  - Hand deformity [Recovering/Resolving]
  - Pain in extremity [Recovered/Resolved]
  - Arthralgia [Recovering/Resolving]
  - Carotid artery disease [Not Recovered/Not Resolved]
  - Suffocation feeling [Recovered/Resolved]
  - Blood calcium increased [Unknown]
  - Pain [Unknown]
  - Skin hypertrophy [Unknown]
  - Application site pain [Unknown]
  - Inappropriate schedule of product administration [Unknown]
  - Limb deformity [Recovering/Resolving]
  - Neck mass [Unknown]
  - Wound [Unknown]
  - Blood growth hormone abnormal [Not Recovered/Not Resolved]
  - Drug ineffective [Unknown]
  - Swelling [Recovered/Resolved]
  - Bone pain [Recovering/Resolving]
  - Spinal deformity [Not Recovered/Not Resolved]
  - Weight increased [Unknown]
  - Musculoskeletal stiffness [Unknown]
  - Acne [Unknown]
  - Nephrolithiasis [Recovered/Resolved]
  - Pituitary tumour recurrent [Unknown]
  - Cholelithiasis [Recovered/Resolved]
  - Weight decreased [Not Recovered/Not Resolved]
  - Thyroid mass [Not Recovered/Not Resolved]
  - Bone erosion [Unknown]
  - Gait disturbance [Recovering/Resolving]
  - Muscle disorder [Unknown]

NARRATIVE: CASE EVENT DATE: 2007
